FAERS Safety Report 18517343 (Version 1)
Quarter: 2020Q4

REPORT INFORMATION
  Report Type: Spontaneous
  Country: US (occurrence: US)
  Receive Date: 20201118
  Receipt Date: 20201118
  Transmission Date: 20210114
  Serious: Yes (Hospitalization, Other)
  Sender: FDA-Public Use
  Company Number: US-AMGEN-USASP2020182879

PATIENT
  Age: 38 Year
  Sex: Female

DRUGS (17)
  1. SACCHARATED IRON OXIDE [Concomitant]
     Active Substance: IRON SUCROSE
  2. CALCITRIOL. [Concomitant]
     Active Substance: CALCITRIOL
     Dosage: 0.25 MICROGRAM, BID
  3. ADEFOVIR [Concomitant]
     Active Substance: ADEFOVIR
  4. PHOSPHORUS [Concomitant]
     Active Substance: PHOSPHORUS
     Dosage: 750 MILLIGRAM, QID
  5. CISPLATIN. [Concomitant]
     Active Substance: CISPLATIN
  6. POTASSIUM PHOSPHATES [Concomitant]
     Active Substance: POTASSIUM PHOSPHATE, DIBASIC\POTASSIUM PHOSPHATE, MONOBASIC
  7. ERGOCALCIFEROL. [Concomitant]
     Active Substance: ERGOCALCIFEROL
     Dosage: 50000 UNIT, QWK
  8. XGEVA [Suspect]
     Active Substance: DENOSUMAB
     Indication: METASTASES TO BONE
     Dosage: UNK
     Route: 065
  9. XGEVA [Suspect]
     Active Substance: DENOSUMAB
     Indication: HYPERCALCAEMIA
  10. IFOSFAMIDE. [Concomitant]
     Active Substance: IFOSFAMIDE
  11. CIDOFOVIR. [Concomitant]
     Active Substance: CIDOFOVIR
  12. CALCIUM CARBONATE. [Concomitant]
     Active Substance: CALCIUM CARBONATE
     Dosage: 1250 MILLIGRAM, BID
  13. CAPECITABINE. [Concomitant]
     Active Substance: CAPECITABINE
  14. SODIUM PHOSPHATE [Concomitant]
     Active Substance: SODIUM PHOSPHATE
  15. CARBOPLATIN. [Concomitant]
     Active Substance: CARBOPLATIN
  16. GEMCITABINE. [Concomitant]
     Active Substance: GEMCITABINE
  17. TAMOXIFEN [Concomitant]
     Active Substance: TAMOXIFEN

REACTIONS (18)
  - Asthenia [Unknown]
  - Breast mass [Unknown]
  - Blood creatinine decreased [Unknown]
  - Pathological fracture [Unknown]
  - Breast disorder [Unknown]
  - Blood 25-hydroxycholecalciferol decreased [Unknown]
  - Blood sodium decreased [Unknown]
  - Hypocalcaemia [Unknown]
  - Blood chloride decreased [Unknown]
  - Blood alkaline phosphatase increased [Unknown]
  - Blood parathyroid hormone increased [Unknown]
  - Decreased appetite [Unknown]
  - Hypophosphataemia [Recovering/Resolving]
  - Blood albumin decreased [Unknown]
  - Osteomalacia [Unknown]
  - General physical health deterioration [Unknown]
  - Biliary catheter insertion [Unknown]
  - Malnutrition [Unknown]
